FAERS Safety Report 15189988 (Version 2)
Quarter: 2018Q3

REPORT INFORMATION
  Report Type: Spontaneous
  Country: US (occurrence: US)
  Receive Date: 20180724
  Receipt Date: 20180731
  Transmission Date: 20181010
  Serious: Yes (Hospitalization)
  Sender: FDA-Public Use
  Company Number: US-PFIZER INC-2018295708

PATIENT
  Age: 83 Year
  Sex: Female
  Weight: 40.82 kg

DRUGS (6)
  1. LYRICA [Suspect]
     Active Substance: PREGABALIN
     Indication: NEUROPATHY PERIPHERAL
     Dosage: 150MG CAPSULE, 3 X DAY
     Route: 048
  2. LYRICA [Suspect]
     Active Substance: PREGABALIN
     Indication: PAIN IN EXTREMITY
     Dosage: 100 MG, UNK
  3. LYRICA [Suspect]
     Active Substance: PREGABALIN
     Indication: ARTHRALGIA
     Dosage: 150 MG, 2X/DAY (TAKES 1 CAPSULE IN THE MORNING AND 1 AT NIGHT)
  4. XANAX [Concomitant]
     Active Substance: ALPRAZOLAM
     Dosage: 1 MG, 3X/DAY
     Dates: start: 2000
  5. LISINOPRIL/HCTZ [Concomitant]
     Active Substance: HYDROCHLOROTHIAZIDE\LISINOPRIL
     Indication: HYPERTENSION
     Dosage: 1 DF, 1X/DAY (10?12 MG)
     Route: 048
  6. LYRICA [Suspect]
     Active Substance: PREGABALIN
     Indication: SCOLIOSIS
     Dosage: 75 MG, UNK

REACTIONS (10)
  - Bladder disorder [Unknown]
  - Intentional product misuse [Unknown]
  - Urinary incontinence [Unknown]
  - Vision blurred [Unknown]
  - Hypoaesthesia [Not Recovered/Not Resolved]
  - Renal mass [Unknown]
  - Gait disturbance [Unknown]
  - Limb injury [Unknown]
  - Loss of personal independence in daily activities [Unknown]
  - Blood glucose fluctuation [Unknown]
